FAERS Safety Report 9645733 (Version 2)
Quarter: 2013Q4

REPORT INFORMATION
  Report Type: Spontaneous
  Country: US (occurrence: US)
  Receive Date: 20131025
  Receipt Date: 20131108
  Transmission Date: 20140711
  Serious: Yes (Other)
  Sender: FDA-Public Use
  Company Number: US-JNJFOC-20131010426

PATIENT
  Sex: Female

DRUGS (2)
  1. DURAGESIC [Suspect]
     Indication: EHLERS-DANLOS SYNDROME
     Route: 062
  2. DURAGESIC [Suspect]
     Indication: EHLERS-DANLOS SYNDROME
     Route: 062

REACTIONS (8)
  - Multiple fractures [Unknown]
  - Myopathy [Not Recovered/Not Resolved]
  - Adverse event [Unknown]
  - Coma [Recovered/Resolved]
  - Wrong technique in drug usage process [Unknown]
  - Drug dose omission [Recovered/Resolved]
  - Product adhesion issue [Unknown]
  - Road traffic accident [Recovered/Resolved]
